FAERS Safety Report 8919233 (Version 1)
Quarter: 2012Q4

REPORT INFORMATION
  Report Type: 
  Country: US (occurrence: US)
  Receive Date: 20121121
  Receipt Date: 20121121
  Transmission Date: 20130627
  Serious: Yes (Other)
  Sender: FDA-Public Use
  Company Number: US-PFIZER INC-2012271021

PATIENT

DRUGS (1)
  1. LYRICA [Suspect]
     Dosage: 50 Cap,UNK

REACTIONS (3)
  - Diabetes mellitus [Unknown]
  - Epilepsy [Unknown]
  - Pain [Unknown]
